FAERS Safety Report 11464850 (Version 1)
Quarter: 2015Q3

REPORT INFORMATION
  Report Type: Spontaneous
  Country: BR (occurrence: BR)
  Receive Date: 20150906
  Receipt Date: 20150906
  Transmission Date: 20151125
  Serious: Yes (Other)
  Sender: FDA-Public Use
  Company Number: BR-JNJFOC-20150721030

PATIENT
  Sex: Male

DRUGS (2)
  1. IMOSEC [Suspect]
     Active Substance: LOPERAMIDE
     Route: 065
  2. IMOSEC [Suspect]
     Active Substance: LOPERAMIDE
     Indication: PRODUCT USED FOR UNKNOWN INDICATION
     Route: 065

REACTIONS (2)
  - Eating disorder [Not Recovered/Not Resolved]
  - Drug dependence [Not Recovered/Not Resolved]
